FAERS Safety Report 7687219 (Version 5)
Quarter: 2013Q4

REPORT INFORMATION
  Report Type: Spontaneous
  Country: US (occurrence: US)
  Receive Date: 20101130
  Receipt Date: 20131121
  Transmission Date: 20140711
  Serious: Yes (Hospitalization, Other)
  Sender: FDA-Public Use
  Company Number: US-JNJFOC-20100804155

PATIENT
  Age: 78 Year
  Sex: Female

DRUGS (4)
  1. LEVAQUIN [Suspect]
     Indication: CYSTITIS
     Route: 048
     Dates: start: 20040101, end: 20061230
  2. LEVAQUIN [Suspect]
     Indication: PRODUCT USED FOR UNKNOWN INDICATION
  3. STEROIDS NOS [Suspect]
     Indication: ARTHRITIS
     Route: 065
  4. LEVAQUIN [Suspect]
     Indication: URINARY TRACT INFECTION
     Route: 048
     Dates: start: 20040101, end: 20061230

REACTIONS (7)
  - Tendon rupture [Unknown]
  - Thrombosis [Unknown]
  - Tendon rupture [Unknown]
  - Gait disturbance [Unknown]
  - Depression [Unknown]
  - Tendon pain [Unknown]
  - Musculoskeletal pain [Unknown]
